FAERS Safety Report 24144191 (Version 3)
Quarter: 2025Q2

REPORT INFORMATION
  Report Type: Spontaneous
  Country: US (occurrence: US)
  Receive Date: 20240727
  Receipt Date: 20250611
  Transmission Date: 20250717
  Serious: Yes (Other)
  Sender: MERCK SHARP & DOHME LLC
  Company Number: US-009507513-2407USA011291

PATIENT
  Age: 72 Year
  Sex: Male

DRUGS (3)
  1. KEYTRUDA [Suspect]
     Active Substance: PEMBROLIZUMAB
     Indication: Lung adenocarcinoma stage IV
     Dosage: DOSE DESCRIPTION : 200 MILLIGRAM, Q3W?DAILY DOSE : 9.4 MILLIGRAM?REGIMEN DOSE : 200  MILLIGRAM?IN...
     Route: 042
     Dates: start: 202309, end: 202309
  2. KEYTRUDA [Suspect]
     Active Substance: PEMBROLIZUMAB
     Indication: Lung adenocarcinoma stage IV
     Dosage: DOSE DESCRIPTION : 200 MILLIGRAM, Q3W?DAILY DOSE : 9.4 MILLIGRAM?REGIMEN DOSE : 200  MILLIGRAM?IN...
     Route: 042
     Dates: start: 202311, end: 202402
  3. KEYTRUDA [Suspect]
     Active Substance: PEMBROLIZUMAB
     Indication: Lung adenocarcinoma stage IV
     Dosage: DOSE DESCRIPTION : 200 MILLIGRAM, Q3W?DAILY DOSE : 9.4 MILLIGRAM?REGIMEN DOSE : 200  MILLIGRAM?IN...
     Route: 042
     Dates: end: 202504

REACTIONS (17)
  - Malignant neoplasm progression [Unknown]
  - Pain in extremity [Unknown]
  - Arthralgia [Unknown]
  - Asthenia [Unknown]
  - Treatment failure [Unknown]
  - Balance disorder [Unknown]
  - Hypopnoea [Unknown]
  - Dyspnoea [Unknown]
  - Abnormal loss of weight [Unknown]
  - Hypoaesthesia [Unknown]
  - Musculoskeletal stiffness [Unknown]
  - Peripheral coldness [Unknown]
  - Hypertonic bladder [Unknown]
  - Abdominal pain lower [Unknown]
  - Insomnia [Unknown]
  - Diplopia [Unknown]
  - Respiration abnormal [Unknown]

NARRATIVE: CASE EVENT DATE: 20250401
